FAERS Safety Report 20832831 (Version 1)
Quarter: 2022Q2

REPORT INFORMATION
  Report Type: 
  Country: None (occurrence: None)
  Receive Date: 20220516
  Receipt Date: 20220516
  Transmission Date: 20220721
  Serious: No
  Sender: FDA-Public Use
  Company Number: US-ROCHE-1700620

PATIENT
  Age: 50 Year

DRUGS (8)
  1. ACTEMRA [Suspect]
     Active Substance: TOCILIZUMAB
     Dates: start: 20151022
  2. ACTEMRA [Suspect]
     Active Substance: TOCILIZUMAB
     Dates: start: 20141205
  3. ACTEMRA [Suspect]
     Active Substance: TOCILIZUMAB
     Dates: start: 20150113
  4. ACTEMRA [Suspect]
     Active Substance: TOCILIZUMAB
     Dosage: PFS 162MG/0.9M
     Dates: start: 201412
  5. ACTEMRA [Suspect]
     Active Substance: TOCILIZUMAB
     Dosage: (STRENGTH; 162MG/0.9M)
     Dates: start: 202203
  6. BUSPAR [Concomitant]
     Active Substance: BUSPIRONE HYDROCHLORIDE
  7. ADVIL [Concomitant]
     Active Substance: IBUPROFEN
     Dosage: 9 ADVIL A DAY.
  8. CLONAZEPAM [Concomitant]
     Active Substance: CLONAZEPAM

REACTIONS (19)
  - Natural killer cell count decreased [None]
  - Eosinophil count increased [None]
  - White blood cell count increased [None]
  - Mean cell volume increased [None]
  - Blood cholesterol increased [None]
  - Flushing [None]
  - Hyperhidrosis [None]
  - Upper respiratory tract infection [None]
  - Arthralgia [None]
  - Immunosuppression [None]
  - Weight increased [None]
  - Diarrhoea [None]
  - Pain in extremity [None]
  - Therapeutic product effect decreased [None]
  - Diarrhoea [None]
  - Off label use [None]
  - Joint swelling [None]
  - Pain [None]
  - Malaise [None]

NARRATIVE: CASE EVENT DATE: 20151001
